FAERS Safety Report 8442264-3 (Version None)
Quarter: 2012Q2

REPORT INFORMATION
  Report Type: 
  Country: None (occurrence: None)
  Receive Date: 20120615
  Receipt Date: 20120612
  Transmission Date: 20120825
  Serious: Yes (Hospitalization, Other)
  Sender: FDA-Public Use
  Company Number: US-BAYER-2012-053459

PATIENT
  Age: 65 Year
  Sex: Male
  Weight: 76.644 kg

DRUGS (1)
  1. NEXAVAR [Suspect]
     Indication: GASTROINTESTINAL STROMAL TUMOUR
     Dosage: 200 MG, BID

REACTIONS (2)
  - TRANSIENT ISCHAEMIC ATTACK [None]
  - ACUTE MYOCARDIAL INFARCTION [None]
